FAERS Safety Report 12688811 (Version 1)
Quarter: 2016Q3

REPORT INFORMATION
  Report Type: Spontaneous
  Country: US (occurrence: None)
  Receive Date: 20160825
  Receipt Date: 20160825
  Transmission Date: 20161109
  Serious: Yes (Disabling)
  Sender: FDA-Public Use
  Company Number: None

PATIENT
  Age: 60 Year
  Sex: Female
  Weight: 69.85 kg

DRUGS (1)
  1. BUPROPION XL 300MG, 300 MG MFG - PAR [Suspect]
     Active Substance: BUPROPION
     Indication: DEPRESSION
     Dosage: 1 TABLET(S) ONCE A DAY TAKEN BY MOUTH
     Route: 048
     Dates: start: 20160816, end: 20160818

REACTIONS (14)
  - Somnolence [None]
  - Muscular weakness [None]
  - Paraesthesia [None]
  - Insomnia [None]
  - Therapy change [None]
  - Dyspnoea [None]
  - Dizziness [None]
  - Anxiety [None]
  - Abdominal discomfort [None]
  - Tremor [None]
  - Malaise [None]
  - Product substitution issue [None]
  - Chest pain [None]
  - Palpitations [None]

NARRATIVE: CASE EVENT DATE: 20160818
